FAERS Safety Report 8499302-1 (Version None)
Quarter: 2012Q3

REPORT INFORMATION
  Report Type: 
  Country: None (occurrence: None)
  Receive Date: 20120710
  Receipt Date: 20120702
  Transmission Date: 20120928
  Serious: Yes (Death)
  Sender: FDA-Public Use
  Company Number: TW-GENZYME-CLOF-1002204

PATIENT
  Age: 13 Year
  Sex: Male

DRUGS (2)
  1. CLOFARABINE [Suspect]
     Indication: ACUTE MYELOID LEUKAEMIA
     Dosage: 45.5 MG, QD
     Route: 065
     Dates: start: 20120101
  2. CYTARABINE [Concomitant]
     Indication: ACUTE MYELOID LEUKAEMIA
     Dosage: 1000 MG/M2, QD
     Route: 065

REACTIONS (1)
  - OVERDOSE [None]
